FAERS Safety Report 15683803 (Version 1)
Quarter: 2018Q4

REPORT INFORMATION
  Report Type: Spontaneous
  Country: DE (occurrence: DE)
  Receive Date: 20181204
  Receipt Date: 20181204
  Transmission Date: 20190205
  Serious: No
  Sender: FDA-Public Use
  Company Number: DE-LUPIN PHARMACEUTICALS INC.-2017-06958

PATIENT
  Age: 40 Year
  Sex: Female

DRUGS (8)
  1. SELEN                              /00075001/ [Concomitant]
     Active Substance: SELENIUM
     Indication: HELLP SYNDROME
     Dosage: 200 MCG, QD
     Route: 065
  2. PROGESTERONE. [Concomitant]
     Active Substance: PROGESTERONE
     Indication: HELLP SYNDROME
     Dosage: 400 MG, QD
     Route: 067
  3. L-THYROXIN [Concomitant]
     Active Substance: LEVOTHYROXINE SODIUM
     Indication: HELLP SYNDROME
     Dosage: 50 MCG, QD
     Route: 065
  4. MYO-INOSITOL [Concomitant]
     Active Substance: INOSITOL
     Indication: HELLP SYNDROME
     Dosage: 1000 MG, QD
     Route: 065
  5. ASPIRIN. [Suspect]
     Active Substance: ASPIRIN
     Indication: HELLP SYNDROME
     Dosage: 100 MG, QD
     Route: 065
  6. FOLIC ACID. [Concomitant]
     Active Substance: FOLIC ACID
     Indication: HELLP SYNDROME
     Dosage: 2.5 MG, QD
     Route: 065
  7. PRAVASTATIN. [Suspect]
     Active Substance: PRAVASTATIN
     Indication: HELLP SYNDROME
     Dosage: 10 MG, QD
     Route: 065
  8. ENOXAPARIN [Concomitant]
     Active Substance: ENOXAPARIN
     Indication: HELLP SYNDROME
     Dosage: 40 MG, QD
     Route: 058

REACTIONS (3)
  - Therapeutic response unexpected [Unknown]
  - Off label use [Unknown]
  - Exposure during pregnancy [Unknown]
